FAERS Safety Report 5664494-6 (Version None)
Quarter: 2008Q1

REPORT INFORMATION
  Report Type: 
  Country: None (occurrence: None)
  Receive Date: 20080314
  Receipt Date: 20080313
  Transmission Date: 20080703
  Serious: Yes (Other)
  Sender: FDA-Public Use
  Company Number: B0509616A

PATIENT
  Age: 79 Year
  Sex: Male

DRUGS (7)
  1. VALTREX [Suspect]
     Indication: HERPES ZOSTER
     Route: 048
     Dates: start: 20080214, end: 20080215
  2. NORVASK [Concomitant]
     Route: 048
  3. CIMETIDINE [Concomitant]
     Route: 065
  4. MAGNESIUM OXIDE [Concomitant]
     Route: 048
  5. TANATRIL [Concomitant]
     Route: 065
  6. UNKNOWN DRUG [Concomitant]
     Route: 048
  7. APLACE [Concomitant]
     Route: 048

REACTIONS (1)
  - DYSURIA [None]
